FAERS Safety Report 21991466 (Version 1)
Quarter: 2023Q1

REPORT INFORMATION
  Report Type: Spontaneous
  Country: US (occurrence: US)
  Receive Date: 20230214
  Receipt Date: 20230214
  Transmission Date: 20230418
  Serious: No
  Sender: FDA-Public Use
  Company Number: US-PFIZER INC-PV202200132622

PATIENT
  Sex: Male

DRUGS (1)
  1. NURTEC ODT [Suspect]
     Active Substance: RIMEGEPANT SULFATE
     Indication: Migraine
     Dosage: 2 DF [TOOK ONE TABLET THIS MORNING/DEVELOPED ANOTHER MIGRAINE AND TOOK ANOTHER DOSE WITHOUT REMEMBER
     Dates: start: 20221227

REACTIONS (4)
  - Drug ineffective [Unknown]
  - Accidental overdose [Unknown]
  - Chest pain [Unknown]
  - Feeling abnormal [Unknown]

NARRATIVE: CASE EVENT DATE: 20221227
